FAERS Safety Report 4510810-8 (Version None)
Quarter: 2004Q4

REPORT INFORMATION
  Report Type: 
  Country: None (occurrence: None)
  Receive Date: 20041122
  Receipt Date: 20041104
  Transmission Date: 20050328
  Serious: Yes (Disabling)
  Sender: FDA-Public Use
  Company Number: 220003M04CAN

PATIENT
  Age: 4 Year
  Sex: Male
  Weight: 18.24 kg

DRUGS (5)
  1. SAIZEN [Suspect]
     Indication: BODY HEIGHT BELOW NORMAL
     Dosage: 18 IU, 1 IN 1 DAYS, SUBCUTANEOUS
     Route: 058
     Dates: start: 20030314
  2. DARBEPOETIN ALFA [Concomitant]
  3. FERROUS SULFATE TAB [Concomitant]
  4. FOSINOPRIL SODIUM [Concomitant]
  5. CALCITRIOL [Concomitant]

REACTIONS (1)
  - DEAFNESS NEUROSENSORY [None]
